FAERS Safety Report 4773820-1 (Version None)
Quarter: 2005Q3

REPORT INFORMATION
  Report Type: 
  Country: None (occurrence: None)
  Receive Date: 20050920
  Receipt Date: 20050411
  Transmission Date: 20060218
  Serious: Yes (Hospitalization)
  Sender: FDA-Public Use
  Company Number: GB-GLAXOSMITHKLINE-B0377469A

PATIENT
  Age: 57 Year
  Sex: Male

DRUGS (1)
  1. MALARONE [Suspect]
     Indication: MALARIA PROPHYLAXIS
     Route: 048
     Dates: start: 20050101

REACTIONS (8)
  - HYPERSENSITIVITY [None]
  - OCULAR HYPERAEMIA [None]
  - OEDEMA MUCOSAL [None]
  - OEDEMA PERIPHERAL [None]
  - ORAL MUCOSAL EXFOLIATION [None]
  - PRURITUS [None]
  - SPEECH DISORDER [None]
  - SWELLING FACE [None]
